FAERS Safety Report 6806568-X (Version None)
Quarter: 2010Q2

REPORT INFORMATION
  Report Type: 
  Country: None (occurrence: None)
  Receive Date: 20100629
  Receipt Date: 20080425
  Transmission Date: 20101027
  Serious: Yes (Other)
  Sender: FDA-Public Use
  Company Number: PR-PFIZER INC-2008021827

PATIENT

DRUGS (1)
  1. VIAGRA [Suspect]

REACTIONS (1)
  - TACHYCARDIA [None]
